FAERS Safety Report 8834001 (Version 1)
Quarter: 2012Q4

REPORT INFORMATION
  Report Type: 
  Country: US (occurrence: US)
  Receive Date: 20121010
  Receipt Date: 20121010
  Transmission Date: 20130627
  Serious: Yes (Other)
  Sender: FDA-Public Use
  Company Number: CHPA2012US020938

PATIENT
  Age: 42 Year
  Sex: Female

DRUGS (6)
  1. EXCEDRIN EXTRA STRENGTH [Suspect]
     Indication: MIGRAINE
     Dosage: 2 DF, as needed
     Route: 048
  2. EXCEDRIN MIGRAINE [Suspect]
     Indication: MIGRAINE
     Route: 048
  3. EXCEDRIN SINUS HEADACHE [Suspect]
     Indication: MIGRAINE
     Dosage: 2 DF as needed
     Route: 048
  4. SYNTHROID [Concomitant]
     Indication: THYROID DISORDER
     Route: 048
  5. OXYTOCIN [Concomitant]
     Indication: PAIN
     Route: 048
  6. OXYCODONE [Concomitant]
     Indication: PAIN
     Route: 048

REACTIONS (4)
  - Thyroid neoplasm [Not Recovered/Not Resolved]
  - Basedow^s disease [Not Recovered/Not Resolved]
  - Lymphadenopathy [Not Recovered/Not Resolved]
  - Foreign body [Unknown]
